FAERS Safety Report 4491943-1 (Version None)
Quarter: 2004Q4

REPORT INFORMATION
  Report Type: 
  Country: None (occurrence: None)
  Receive Date: 20041029
  Receipt Date: 20041029
  Transmission Date: 20050328
  Serious: Yes (Hospitalization)
  Sender: FDA-Public Use
  Company Number: None

PATIENT
  Age: 47 Year
  Sex: Male
  Weight: 81.6928 kg

DRUGS (7)
  1. PLAQUENIL [Suspect]
     Indication: RHEUMATOID ARTHRITIS
     Dosage: 200MG   EVERY 12 H  ORAL
     Route: 048
     Dates: start: 20040620, end: 20040720
  2. LEXAPRO [Concomitant]
  3. REMERON SOLTAB [Concomitant]
  4. RISPERDAL [Concomitant]
  5. KLONOPIN [Concomitant]
  6. BEXTRA [Concomitant]
  7. BENADRYL [Concomitant]

REACTIONS (10)
  - ANXIETY [None]
  - ASTHENIA [None]
  - CONDITION AGGRAVATED [None]
  - DECREASED APPETITE [None]
  - DEPRESSED MOOD [None]
  - DEPRESSION [None]
  - DISTURBANCE IN ATTENTION [None]
  - INSOMNIA [None]
  - LIBIDO DECREASED [None]
  - THINKING ABNORMAL [None]
